FAERS Safety Report 7305660-3 (Version None)
Quarter: 2011Q1

REPORT INFORMATION
  Report Type: 
  Country: None (occurrence: None)
  Receive Date: 20110222
  Receipt Date: 20110214
  Transmission Date: 20110831
  Serious: Yes (Hospitalization, Congenital Anomaly)
  Sender: FDA-Public Use
  Company Number: A0871466A

PATIENT
  Sex: Female

DRUGS (2)
  1. VITAMIN AND MINERAL PRENATAL SUPPLEMENT W/ FOLIC ACID CAP [Concomitant]
     Route: 064
  2. PAXIL [Suspect]
     Indication: DEPRESSION
     Route: 064
     Dates: start: 19951204, end: 19960212

REACTIONS (9)
  - PATENT DUCTUS ARTERIOSUS [None]
  - CARDIOMEGALY [None]
  - PULMONARY VALVE STENOSIS [None]
  - TRICUSPID VALVE INCOMPETENCE [None]
  - ATRIAL SEPTAL DEFECT [None]
  - DRUG EXPOSURE DURING PREGNANCY [None]
  - AORTIC VALVE INCOMPETENCE [None]
  - RIGHT AORTIC ARCH [None]
  - MATERNAL DRUGS AFFECTING FOETUS [None]
